FAERS Safety Report 5355720-1 (Version None)
Quarter: 2007Q2

REPORT INFORMATION
  Report Type: 
  Country: None (occurrence: None)
  Receive Date: 20070613
  Receipt Date: 20070606
  Transmission Date: 20071010
  Serious: Yes (Hospitalization)
  Sender: FDA-Public Use
  Company Number: US-ROCHE-501130

PATIENT
  Age: 59 Year
  Sex: Female
  Weight: 68 kg

DRUGS (2)
  1. BONIVA [Suspect]
     Indication: OSTEOPENIA
     Dosage: FORM REPORTED AS: PILL
     Route: 048
     Dates: start: 20070603
  2. ZETIA [Concomitant]
     Dosage: REPORTED AS: ZITIA

REACTIONS (10)
  - ARTHRALGIA [None]
  - ASTHENIA [None]
  - DIARRHOEA [None]
  - DIZZINESS [None]
  - HEART RATE INCREASED [None]
  - HEMIPARESIS [None]
  - MYALGIA [None]
  - PYREXIA [None]
  - SINUSITIS [None]
  - VOMITING [None]
